FAERS Safety Report 9240639 (Version 2)
Quarter: 2013Q3

REPORT INFORMATION
  Report Type: Report from Study
  Country: JP (occurrence: JP)
  Receive Date: 20130418
  Receipt Date: 20130812
  Transmission Date: 20140515
  Serious: Yes (Disabling)
  Sender: FDA-Public Use
  Company Number: JP-ALLERGAN-1305637US

PATIENT
  Age: 64 Year
  Sex: Male

DRUGS (3)
  1. BIMATOPROST 0.03% SOL-EYE (9106X) [Suspect]
     Indication: NORMAL TENSION GLAUCOMA
     Dosage: 2 GTT, QD
     Route: 047
     Dates: start: 20111209
  2. HYALONSAN [Concomitant]
     Indication: PRODUCT USED FOR UNKNOWN INDICATION
     Dosage: UNK
     Dates: start: 20021214
  3. HYALONSAN [Concomitant]
     Dosage: UNK
     Dates: start: 20021112, end: 20120626

REACTIONS (2)
  - Visual field defect [Not Recovered/Not Resolved]
  - Cataract [Not Recovered/Not Resolved]
